FAERS Safety Report 26171209 (Version 1)
Quarter: 2025Q4

REPORT INFORMATION
  Report Type: Spontaneous
  Country: US (occurrence: None)
  Receive Date: 20251217
  Receipt Date: 20251217
  Transmission Date: 20260117
  Serious: Yes (Other)
  Sender: FDA-CTU
  Company Number: None

PATIENT
  Age: 31 Year
  Sex: Male

DRUGS (3)
  1. AMOXICILLIN [Suspect]
     Active Substance: AMOXICILLIN
     Indication: Mental disorder
     Dosage: OTHER QUANTITY : 21 TABLET(S);
     Dates: start: 20251202, end: 20251207
  2. DIVALPROEX SODIUM [Suspect]
     Active Substance: DIVALPROEX SODIUM
     Dosage: OTHER QUANTITY : 14 TABLET(S);
  3. CAPLYTA [Suspect]
     Active Substance: LUMATEPERONE

REACTIONS (3)
  - Product odour abnormal [None]
  - Diarrhoea [None]
  - Product label issue [None]

NARRATIVE: CASE EVENT DATE: 20251202
